FAERS Safety Report 13339386 (Version 3)
Quarter: 2017Q2

REPORT INFORMATION
  Report Type: Spontaneous
  Country: JP (occurrence: JP)
  Receive Date: 20170315
  Receipt Date: 20170526
  Transmission Date: 20170830
  Serious: Yes (Other)
  Sender: FDA-Public Use
  Company Number: JP-PFIZER INC-2017041030

PATIENT
  Age: 82 Year
  Sex: Female
  Weight: 53 kg

DRUGS (13)
  1. BONALON [Concomitant]
     Active Substance: ALENDRONATE SODIUM
     Dosage: 35 MG, WEEKLY, ON TUESDAYS
  2. VITAMINS NOS [Concomitant]
     Active Substance: VITAMINS
     Indication: PAIN IN EXTREMITY
     Dosage: 5 UG, 3X/DAY
     Route: 048
     Dates: start: 20161104
  3. RABEPRAZOLE [Concomitant]
     Active Substance: RABEPRAZOLE
  4. ETIZOLAM [Concomitant]
     Active Substance: ETIZOLAM
     Dosage: 0.5 MG, 2X/DAY, AFTER BREAK FAST AND BEFORE SLEEP,
     Route: 048
  5. ONEALFA [Concomitant]
     Active Substance: ALFACALCIDOL
     Dosage: 1.0 UG, UNK
  6. PLAVIX [Concomitant]
     Active Substance: CLOPIDOGREL BISULFATE
     Dosage: 75 MG, 1X/DAY
     Route: 048
  7. SULPIRIDE [Concomitant]
     Active Substance: SULPIRIDE
     Dosage: 50 MG, 2X/DAY, AFTER BREAKFAST AND DINNER
     Route: 048
  8. CELECOX [Concomitant]
     Active Substance: CELECOXIB
     Indication: MUSCULOSKELETAL PAIN
     Dosage: 100 MG, 2X/DAY
     Route: 048
     Dates: start: 20161111
  9. TRAMAL [Suspect]
     Active Substance: TRAMADOL
     Indication: PAIN
     Dosage: 25 MG, 2X/DAY
     Route: 048
     Dates: start: 20161104, end: 20170127
  10. JANUVIA [Concomitant]
     Active Substance: SITAGLIPTIN PHOSPHATE
     Dosage: 50 MG, 1X/DAY, AFTER BREAKFAST
     Route: 048
  11. ETHYL ICOSAPENTATE [Concomitant]
     Active Substance: ICOSAPENT ETHYL
     Dosage: 900 MG, 2X/DAY, AFTER BREKFAST AND DINNER
     Route: 048
  12. LYRICA [Suspect]
     Active Substance: PREGABALIN
     Indication: NEURALGIA
     Dosage: 25 MG, 2X/DAY
     Route: 048
     Dates: start: 20161104, end: 20170111
  13. SUNBAZON [Concomitant]
     Dosage: 50 MG, 1X/DAY, BEFORE DINNER,
     Route: 048

REACTIONS (1)
  - Parkinson^s disease [Unknown]

NARRATIVE: CASE EVENT DATE: 20170126
